FAERS Safety Report 6766918-X (Version None)
Quarter: 2010Q2

REPORT INFORMATION
  Report Type: 
  Country: None (occurrence: None)
  Receive Date: 20100611
  Receipt Date: 20100602
  Transmission Date: 20101027
  Serious: Yes (Hospitalization, Other)
  Sender: FDA-Public Use
  Company Number: US-ABBOTT-09P-163-0607572-00

PATIENT
  Sex: Female
  Weight: 81.72 kg

DRUGS (7)
  1. HUMIRA [Suspect]
     Indication: RHEUMATOID ARTHRITIS
     Route: 058
     Dates: start: 20060101
  2. HUMIRA [Suspect]
     Indication: RHEUMATOID ARTHRITIS
     Route: 058
     Dates: start: 20060101
  3. HUMIRA [Suspect]
     Route: 058
  4. HYDROCODONE [Concomitant]
     Indication: PAIN
  5. CYCLOBENZAPRINE [Concomitant]
     Indication: MUSCLE RELAXANT THERAPY
  6. LISINOPRIL [Concomitant]
     Indication: HYPERTENSION
  7. SERTRALINE HCL [Concomitant]
     Indication: DEPRESSION
     Dates: start: 20100301

REACTIONS (14)
  - ABASIA [None]
  - APHONIA [None]
  - CONTUSION [None]
  - GAIT DISTURBANCE [None]
  - INJECTION SITE HAEMATOMA [None]
  - INJECTION SITE PAPULE [None]
  - INJECTION SITE PRURITUS [None]
  - NASOPHARYNGITIS [None]
  - PAIN IN EXTREMITY [None]
  - SPINAL DISORDER [None]
  - STAPHYLOCOCCAL INFECTION [None]
  - THROMBOSIS [None]
  - VOCAL CORD PARALYSIS [None]
  - WEIGHT INCREASED [None]
